FAERS Safety Report 18381923 (Version 1)
Quarter: 2020Q4

REPORT INFORMATION
  Report Type: Spontaneous
  Country: US (occurrence: US)
  Receive Date: 20201014
  Receipt Date: 20201014
  Transmission Date: 20210114
  Serious: No
  Sender: FDA-Public Use
  Company Number: US-BAYER-2020-221124

PATIENT
  Sex: Female

DRUGS (1)
  1. MIRALAX [Suspect]
     Active Substance: POLYETHYLENE GLYCOL 3350
     Dosage: 17 G
     Route: 048
     Dates: start: 20201010, end: 20201013

REACTIONS (2)
  - Head discomfort [Unknown]
  - Drug ineffective [Not Recovered/Not Resolved]
